FAERS Safety Report 15482199 (Version 3)
Quarter: 2018Q4

REPORT INFORMATION
  Report Type: Report from Study
  Country: None (occurrence: US)
  Receive Date: 20181010
  Receipt Date: 20181226
  Transmission Date: 20190205
  Serious: Yes (Hospitalization, Other)
  Sender: FDA-Public Use
  Company Number: US-ABBVIE-18K-163-2330083-00

PATIENT
  Age: 52 Year
  Sex: Female

DRUGS (5)
  1. HUMIRA [Suspect]
     Active Substance: ADALIMUMAB
     Route: 058
     Dates: start: 20180406, end: 20180406
  2. HUMIRA [Suspect]
     Active Substance: ADALIMUMAB
     Indication: COLITIS ULCERATIVE
     Dosage: DAY 1
     Route: 058
     Dates: start: 20180309, end: 20180309
  3. HUMIRA [Suspect]
     Active Substance: ADALIMUMAB
     Dosage: DAY 15 DOSE WAS TAKEN FOUR DAYS LATER FROM 23 MAR 2018
     Route: 058
     Dates: start: 20180327, end: 20180327
  4. HUMIRA [Suspect]
     Active Substance: ADALIMUMAB
     Route: 058
     Dates: start: 20180415
  5. PREDNISONE. [Concomitant]
     Active Substance: PREDNISONE
     Indication: PRODUCT USED FOR UNKNOWN INDICATION

REACTIONS (22)
  - Abdominal pain [Not Recovered/Not Resolved]
  - Photosensitivity reaction [Unknown]
  - Insomnia [Recovering/Resolving]
  - Haematochezia [Unknown]
  - Skin ulcer [Not Recovered/Not Resolved]
  - Musculoskeletal chest pain [Unknown]
  - Headache [Unknown]
  - Appendicectomy [Unknown]
  - Pain of skin [Not Recovered/Not Resolved]
  - Intestinal obstruction [Unknown]
  - Nausea [Not Recovered/Not Resolved]
  - Constipation [Recovering/Resolving]
  - Decreased appetite [Recovering/Resolving]
  - Arthralgia [Not Recovered/Not Resolved]
  - Vomiting [Recovering/Resolving]
  - Loss of personal independence in daily activities [Not Recovered/Not Resolved]
  - Rash pustular [Not Recovered/Not Resolved]
  - Device issue [Unknown]
  - Gastrointestinal inflammation [Unknown]
  - Diarrhoea [Recovering/Resolving]
  - Pus in stool [Unknown]
  - Colitis ulcerative [Recovering/Resolving]

NARRATIVE: CASE EVENT DATE: 2018
